FAERS Safety Report 9506754 (Version 1)
Quarter: 2013Q3

REPORT INFORMATION
  Report Type: Spontaneous
  Country: FR (occurrence: FR)
  Receive Date: 20130909
  Receipt Date: 20130909
  Transmission Date: 20140515
  Serious: Yes (Other)
  Sender: FDA-Public Use
  Company Number: FR-ROCHE-1271351

PATIENT
  Age: 66 Year
  Sex: Male

DRUGS (12)
  1. RIVOTRIL [Suspect]
     Indication: ANXIETY
     Dosage: ORAL SOLUTION DROP IN EVENING, LONG-TERM TREATMENT
     Route: 048
  2. RIVOTRIL [Suspect]
     Dosage: ORAL SOLUTION DROP IN EVENING, LONG-TERM TREATMENT START ON 26/JUL/2013
     Route: 048
  3. KARDEGIC [Concomitant]
     Route: 048
  4. NOVORAPID [Concomitant]
     Dosage: LONG-TERM TREATMENT
     Route: 058
  5. INEXIUM [Concomitant]
     Dosage: GASTRO-RESISTANT TABLET, LONG-TERM TREATMENT
     Route: 048
  6. LYRICA [Concomitant]
     Dosage: LONG-TERM TREATMENT
     Route: 048
  7. LANTUS [Concomitant]
     Dosage: LONG-TERM TREATMENT
     Route: 058
  8. PARACETAMOL [Concomitant]
     Dosage: PARACETAMOL ARROW, LONG-TERM TREATMENT
     Route: 048
  9. VANCOMYCINE [Concomitant]
     Dosage: VANCOMYCINE MYLAN, LONG-TERM TREATMENT
     Route: 041
  10. LEVOCARNIL [Concomitant]
     Dosage: 1G/5ML, INJECTABLE SOLUTION
     Route: 042
  11. ACTISKENAN [Concomitant]
     Dosage: LONG-TERM TREATMENT
     Route: 048
  12. BISOCE [Concomitant]
     Dosage: DOSAGE=2.5MG, LONG-TERM TREATMENT
     Route: 048

REACTIONS (2)
  - Altered state of consciousness [Recovered/Resolved]
  - Hypotension [Recovered/Resolved]
